FAERS Safety Report 9214638 (Version 1)
Quarter: 2013Q1

REPORT INFORMATION
  Report Type: Spontaneous
  Country: US (occurrence: None)
  Receive Date: 20120827
  Receipt Date: 20120827
  Transmission Date: 20140127
  Serious: No
  Sender: FDA-Public Use
  Company Number: 352423

PATIENT
  Age: 38 Year
  Sex: Female
  Weight: 122.4 kg

DRUGS (1)
  1. VICTOZA [Suspect]
     Indication: HYPERGLYCAEMIA
     Route: 058
     Dates: start: 201103, end: 20120416

REACTIONS (1)
  - Cholelithiasis [None]
